FAERS Safety Report 9339482 (Version 1)
Quarter: 2013Q2

REPORT INFORMATION
  Report Type: Spontaneous
  Country: MX (occurrence: MX)
  Receive Date: 20130610
  Receipt Date: 20130610
  Transmission Date: 20140414
  Serious: Yes (Other)
  Sender: FDA-Public Use
  Company Number: MX-SANOFI-AVENTIS-2013SA055302

PATIENT
  Age: 65 Year
  Sex: Male
  Weight: 98 kg

DRUGS (5)
  1. LASIX [Suspect]
     Indication: GENERALISED OEDEMA
     Dosage: IN MORNING
     Route: 048
     Dates: start: 201211, end: 201212
  2. LASILACTON [Suspect]
     Indication: GENERALISED OEDEMA
     Dosage: AT NIGHT
     Route: 048
     Dates: start: 201211
  3. METFORMIN [Concomitant]
     Indication: TYPE 2 DIABETES MELLITUS
     Dosage: STRENGTH: 850 MG?1/2 TAB IN THE MORNING, 1 TAB IN THE AFTERNOON AND 1 TAB AT NIGHT
     Route: 048
  4. GLINORBORAL [Concomitant]
     Indication: TYPE 2 DIABETES MELLITUS
     Dosage: STRENGTH: 5 MG PLUS 50 MG?IN MORNING
     Route: 048
  5. GLIBENCLAMIDE [Concomitant]
     Indication: TYPE 2 DIABETES MELLITUS
     Dosage: ONE TAB IN MORNING, 1 IN AFTERNOON AND 1 AT NIGHT?STRENGTH: 5 MG
     Route: 048

REACTIONS (1)
  - Weight decreased [Recovered/Resolved]
